FAERS Safety Report 4472124-4 (Version None)
Quarter: 2004Q3

REPORT INFORMATION
  Report Type: 
  Country: None (occurrence: None)
  Receive Date: 20040909
  Receipt Date: 20040621
  Transmission Date: 20050211
  Serious: No
  Sender: FDA-Public Use
  Company Number: A03200401996

PATIENT
  Age: 70 Year
  Sex: Female
  Weight: 59.4212 kg

DRUGS (11)
  1. ELOXATIN [Suspect]
     Indication: COLORECTAL CANCER METASTATIC
     Dosage: 145 MG Q3W - INTRAVENOUS NOS
     Route: 042
     Dates: start: 20040621, end: 20040621
  2. ELOXATIN [Suspect]
  3. CAPECITABINE [Concomitant]
  4. DOLASETRON MESILATE [Concomitant]
  5. DEXAMETHASONE [Concomitant]
  6. HYDROCORTISONE [Concomitant]
  7. METOPROLOL [Concomitant]
  8. FENTANYL [Concomitant]
  9. ACETAMINOPHEN/OXYCODONE [Concomitant]
  10. VITAMIN A [Concomitant]
  11. SENNA FRUIT [Concomitant]

REACTIONS (3)
  - INFUSION SITE BURNING [None]
  - INJECTION SITE PAIN [None]
  - SKIN WRINKLING [None]
